FAERS Safety Report 15230955 (Version 1)
Quarter: 2018Q3

REPORT INFORMATION
  Report Type: Spontaneous
  Country: US (occurrence: US)
  Receive Date: 20180802
  Receipt Date: 20180802
  Transmission Date: 20181010
  Serious: Yes (Other)
  Sender: FDA-Public Use
  Company Number: US-ACCORD-063223

PATIENT
  Age: 64 Year
  Sex: Female
  Weight: 125 kg

DRUGS (16)
  1. MACROGOL [Concomitant]
     Active Substance: POLYETHYLENE GLYCOLS
     Dosage: 17GM/DOSE POWDER
     Route: 048
  2. LEXAPRO [Concomitant]
     Active Substance: ESCITALOPRAM OXALATE
     Dates: start: 2014
  3. REMERON [Concomitant]
     Active Substance: MIRTAZAPINE
     Dosage: STRENGTH: 30 MG
     Route: 048
     Dates: start: 2014
  4. HYDROXYZINE [Concomitant]
     Active Substance: HYDROXYZINE HYDROCHLORIDE
     Dosage: STRENGTH: 50 MG
     Route: 048
  5. MEGESTROL [Concomitant]
     Active Substance: MEGESTROL
     Dosage: STRENGTH: 40 MG?DOSE: 1 TABLET
     Route: 048
  6. DOCETAXEL ACCORD [Suspect]
     Active Substance: DOCETAXEL
     Indication: BREAST CANCER
     Dosage: EVERY THREE WEEKS
     Dates: start: 20160108, end: 20160422
  7. METFORMIN [Concomitant]
     Active Substance: METFORMIN HYDROCHLORIDE
     Dosage: STRENGTH: 1000 MG
     Route: 048
     Dates: start: 2008
  8. METOPROLOL. [Concomitant]
     Active Substance: METOPROLOL
     Dosage: STRENGTH: 25 MG
     Route: 048
     Dates: start: 2010
  9. VENLAFAXINE [Concomitant]
     Active Substance: VENLAFAXINE HYDROCHLORIDE
     Dosage: STRENGTH: 150 MG?CAPSULE SR 24 HR
     Route: 048
  10. HYDROCODONE BITARTRATE/PARACETAMOL [Concomitant]
     Dosage: STRENGTH: 10?325 MG?4 TO 6 HOURS PRN
     Route: 048
  11. FUROSEMIDE. [Concomitant]
     Active Substance: FUROSEMIDE
     Dosage: STRENGTH: 40 MG ?DOSE: 1 TABLET
     Route: 048
  12. LEVEMIR [Concomitant]
     Active Substance: INSULIN DETEMIR
     Dosage: STRENGTH: 100 UNIT/ML (3ML)?25?26 UNITS AT BEDTIME
     Route: 058
     Dates: start: 2015
  13. ACTOS [Concomitant]
     Active Substance: PIOGLITAZONE HYDROCHLORIDE
     Dosage: STRENGTH: 30 MG
     Route: 048
  14. ZOFRAN [Concomitant]
     Active Substance: ONDANSETRON HYDROCHLORIDE
     Dosage: STRENGTH: 4 MG?4 TO 6 HOURS PRN
     Route: 048
  15. CYTOXAN [Suspect]
     Active Substance: CYCLOPHOSPHAMIDE
     Indication: BREAST CANCER
  16. LETROZOLE. [Concomitant]
     Active Substance: LETROZOLE
     Dosage: STRENGTH: 2.5 MG
     Route: 048

REACTIONS (1)
  - Alopecia [Not Recovered/Not Resolved]

NARRATIVE: CASE EVENT DATE: 201609
